FAERS Safety Report 24048560 (Version 1)
Quarter: 2024Q3

REPORT INFORMATION
  Report Type: Other
  Country: SE (occurrence: SE)
  Receive Date: 20240704
  Receipt Date: 20240704
  Transmission Date: 20241017
  Serious: Yes (Other)
  Sender: DENTSPLY
  Company Number: SE-DENTSPLY-2024SCDP000191

PATIENT
  Age: 16 Year
  Sex: Male

DRUGS (1)
  1. EPINEPHRINE BITARTRATE\LIDOCAINE HYDROCHLORIDE [Suspect]
     Active Substance: EPINEPHRINE BITARTRATE\LIDOCAINE HYDROCHLORIDE
     Indication: Anaesthesia procedure
     Dosage: UNK DOSE OF 20 MG/ML + 12.5 MCGS/ML XYLOCAIN DENTAL ADRENALIN INJECTIONFLUID, SOLUTION/SOLUTION FOR
     Dates: start: 20240619, end: 20240619

REACTIONS (1)
  - Epilepsy [Recovering/Resolving]

NARRATIVE: CASE EVENT DATE: 20240619
